FAERS Safety Report 4946625-6 (Version None)
Quarter: 2006Q1

REPORT INFORMATION
  Report Type: 
  Country: None (occurrence: None)
  Receive Date: 20060317
  Receipt Date: 20060307
  Transmission Date: 20060701
  Serious: Yes (Other)
  Sender: FDA-Public Use
  Company Number: PHBS2006JP03730

PATIENT
  Weight: 70 kg

DRUGS (1)
  1. NEORAL [Suspect]
     Indication: PSORIASIS
     Dosage: 3 MG/KG/D
     Route: 048

REACTIONS (2)
  - DRUG LEVEL INCREASED [None]
  - PANCYTOPENIA [None]
